FAERS Safety Report 21688080 (Version 1)
Quarter: 2022Q4

REPORT INFORMATION
  Report Type: Spontaneous
  Country: JP (occurrence: JP)
  Receive Date: 20221206
  Receipt Date: 20221206
  Transmission Date: 20230113
  Serious: Yes (Hospitalization)
  Sender: FDA-Public Use
  Company Number: JP-PFIZER INC-202201346567

PATIENT

DRUGS (1)
  1. SUTENT [Suspect]
     Active Substance: SUNITINIB MALATE
     Indication: Gastrointestinal stromal tumour
     Dosage: ADMINISTERED SUTENT FOR 4 DAYS AND TEMPORARILY WITHDRAWN FOR 2 DAYS
     Route: 048

REACTIONS (2)
  - Hepatic encephalopathy [Recovering/Resolving]
  - Ammonia increased [Recovering/Resolving]

NARRATIVE: CASE EVENT DATE: 20221130
